FAERS Safety Report 5747891-X (Version None)
Quarter: 2008Q2

REPORT INFORMATION
  Report Type: 
  Country: None (occurrence: None)
  Receive Date: 20080523
  Receipt Date: 20080521
  Transmission Date: 20081010
  Serious: Yes (Other)
  Sender: FDA-Public Use
  Company Number: US-BRISTOL-MYERS SQUIBB COMPANY-14199715

PATIENT

DRUGS (1)
  1. CARMUSTINE [Suspect]

REACTIONS (1)
  - PNEUMOTHORAX [None]
